FAERS Safety Report 7177442-7 (Version None)
Quarter: 2010Q4

REPORT INFORMATION
  Report Type: 
  Country: None (occurrence: None)
  Receive Date: 20101220
  Receipt Date: 20101214
  Transmission Date: 20110411
  Serious: Yes (Hospitalization)
  Sender: FDA-Public Use
  Company Number: US-B.I. PHARMACEUTICALS,INC./RIDGEFIELD-2007-BP-18155BP

PATIENT
  Sex: Male

DRUGS (2)
  1. SPIRIVA [Suspect]
     Indication: CHRONIC OBSTRUCTIVE PULMONARY DISEASE
     Dosage: 18 MCG
  2. SPIRIVA [Suspect]
     Dosage: 18 MCG
     Route: 055
     Dates: start: 20100101

REACTIONS (6)
  - ABDOMINAL PAIN UPPER [None]
  - ASTHMA [None]
  - BRONCHIAL DISORDER [None]
  - DRUG INEFFECTIVE [None]
  - DRY MOUTH [None]
  - MYOCARDIAL INFARCTION [None]
